FAERS Safety Report 25841866 (Version 5)
Quarter: 2025Q4

REPORT INFORMATION
  Report Type: Spontaneous
  Country: BR (occurrence: BR)
  Receive Date: 20250924
  Receipt Date: 20251111
  Transmission Date: 20260117
  Serious: Yes (Other)
  Sender: PFIZER
  Company Number: BR-PFIZER INC-PV202500110535

PATIENT
  Age: 12 Year
  Sex: Female

DRUGS (2)
  1. SOMATROGON [Suspect]
     Active Substance: SOMATROGON
     Indication: Short stature
     Dosage: 20 MG, WEEKLY
     Dates: start: 2024
  2. SOMATROGON [Suspect]
     Active Substance: SOMATROGON
     Dosage: 25 MG, WEEKLY

REACTIONS (5)
  - Injection site pain [Unknown]
  - Drug ineffective [Unknown]
  - Incorrect dose administered by device [Unknown]
  - Device delivery system issue [Unknown]
  - Lack of injection site rotation [Unknown]
